FAERS Safety Report 25404167 (Version 2)
Quarter: 2025Q2

REPORT INFORMATION
  Report Type: Spontaneous
  Country: ES (occurrence: ES)
  Receive Date: 20250606
  Receipt Date: 20250618
  Transmission Date: 20250717
  Serious: Yes (Life-Threatening, Hospitalization, Other)
  Sender: AUROBINDO
  Company Number: ES-JNJFOC-20250522402

PATIENT
  Age: 64 Year
  Sex: Male
  Weight: 74 kg

DRUGS (11)
  1. BORTEZOMIB [Suspect]
     Active Substance: BORTEZOMIB
     Indication: Plasma cell myeloma
     Route: 058
     Dates: start: 20250122, end: 20250201
  2. LENALIDOMIDE [Suspect]
     Active Substance: LENALIDOMIDE
     Indication: Plasma cell myeloma
     Dosage: 25 MILLIGRAM, ONCE A DAY
     Route: 048
     Dates: start: 20250122, end: 20250201
  3. DARATUMUMAB [Suspect]
     Active Substance: DARATUMUMAB
     Indication: Plasma cell myeloma
     Route: 058
     Dates: start: 20250123
  4. DARATUMUMAB [Suspect]
     Active Substance: DARATUMUMAB
     Route: 058
     Dates: start: 20250130
  5. DEXAMETHASONE [Suspect]
     Active Substance: DEXAMETHASONE
     Indication: Plasma cell myeloma
     Dosage: 40 MILLIGRAM, FOUR TIMES/DAY
     Route: 065
     Dates: start: 20250122, end: 20250201
  6. DEXAMETHASONE [Suspect]
     Active Substance: DEXAMETHASONE
     Indication: Back pain
  7. ACYCLOVIR [Concomitant]
     Active Substance: ACYCLOVIR
     Indication: Prophylaxis
     Route: 048
     Dates: end: 20250122
  8. ENOXAPARIN [Concomitant]
     Active Substance: ENOXAPARIN
     Indication: Thrombotic thrombocytopenic purpura
     Dosage: 4000 INTERNATIONAL UNIT, ONCE A DAY
     Route: 058
  9. FENTANYL [Concomitant]
     Active Substance: FENTANYL
     Indication: Pain
     Dosage: 25 MICROGRAM, EVERY  2 WEEK
     Route: 065
  10. DEXAMETHASONE [Concomitant]
     Active Substance: DEXAMETHASONE
     Indication: Back pain
     Dosage: 8 MILLIGRAM, 3 TIMES A DAY
     Route: 042
     Dates: start: 20250110, end: 20250116
  11. DEXAMETHASONE [Concomitant]
     Active Substance: DEXAMETHASONE
     Dosage: 4 MILLIGRAM, 3 TIMES A DAY
     Route: 042
     Dates: start: 20250117, end: 20250122

REACTIONS (1)
  - Pneumocystis jirovecii pneumonia [Recovering/Resolving]

NARRATIVE: CASE EVENT DATE: 20250202
